FAERS Safety Report 4334717-4 (Version None)
Quarter: 2004Q2

REPORT INFORMATION
  Report Type: 
  Country: None (occurrence: None)
  Receive Date: 20040405
  Receipt Date: 20040324
  Transmission Date: 20050107
  Serious: Yes (Other)
  Sender: FDA-Public Use
  Company Number: US-JNJFOC-20040305843

PATIENT
  Age: 14 Year
  Sex: Female

DRUGS (4)
  1. REMICADE [Suspect]
     Indication: JUVENILE ARTHRITIS
     Dosage: INTRAVENOUS
     Route: 042
     Dates: start: 20040101
  2. PREVACID [Concomitant]
  3. GLAUCOMA MEDICATION (ANTIGLAUCOMA PREPARATIONS AND MIOTICS) [Concomitant]
  4. AZACOL (MESALAZINE) [Concomitant]

REACTIONS (1)
  - INTRAOCULAR PRESSURE INCREASED [None]
